FAERS Safety Report 9276385 (Version 1)
Quarter: 2013Q2

REPORT INFORMATION
  Report Type: Report from Study
  Country: US (occurrence: US)
  Receive Date: 20130507
  Receipt Date: 20130507
  Transmission Date: 20140414
  Serious: Yes (Other)
  Sender: FDA-Public Use
  Company Number: US-PFIZER INC-2013136911

PATIENT
  Age: 61 Year
  Sex: Female

DRUGS (8)
  1. CARBOPLATIN [Suspect]
     Indication: OVARIAN CANCER RECURRENT
     Dosage: SIX CYCLES
  2. CARBOPLATIN [Suspect]
     Dosage: CYCLIC
  3. PACLITAXEL [Suspect]
     Indication: OVARIAN CANCER RECURRENT
     Dosage: SIX CYCLES
  4. GEMCITABINE HYDROCHLORIDE [Suspect]
     Indication: OVARIAN CANCER RECURRENT
     Dosage: CYCLIC
  5. ETOPOSIDE [Suspect]
     Indication: OVARIAN CANCER RECURRENT
     Dosage: UNK
  6. TOPOTECAN HYDROCHLORIDE [Suspect]
     Indication: OVARIAN CANCER RECURRENT
     Dosage: UNK
  7. LIPOSOMAL FORMULATION OF DOXORUBICIN [Suspect]
     Indication: OVARIAN CANCER RECURRENT
     Dosage: SIX CYCLES
  8. LIPOSOMAL FORMULATION OF DOXORUBICIN [Suspect]
     Dosage: 880 MG/M2 (TOTAL CUMMULATIVE DOSE)
     Dates: start: 200710, end: 200902

REACTIONS (6)
  - Renal failure chronic [Recovering/Resolving]
  - Thrombotic microangiopathy [Unknown]
  - Ovarian cancer [None]
  - Malignant neoplasm progression [None]
  - Carbohydrate antigen 125 increased [None]
  - Hypertension [None]
